FAERS Safety Report 10270234 (Version 3)
Quarter: 2014Q3

REPORT INFORMATION
  Report Type: Spontaneous
  Country: IT (occurrence: IT)
  Receive Date: 20140701
  Receipt Date: 20140814
  Transmission Date: 20150326
  Serious: Yes (Hospitalization, Other)
  Sender: FDA-Public Use
  Company Number: IT-ELI_LILLY_AND_COMPANY-IT201406006685

PATIENT
  Age: 20 Year
  Sex: Male

DRUGS (15)
  1. NOVORAPID [Suspect]
     Active Substance: INSULIN ASPART
     Indication: PRODUCT USED FOR UNKNOWN INDICATION
     Dosage: 64 DF, QD
     Route: 058
     Dates: start: 20101007, end: 20140618
  2. LORTAAN [Concomitant]
     Active Substance: LOSARTAN POTASSIUM
     Route: 048
  3. COUMADIN [Concomitant]
     Active Substance: WARFARIN SODIUM
     Route: 048
  4. LANTUS [Suspect]
     Active Substance: INSULIN GLARGINE
     Indication: PRODUCT USED FOR UNKNOWN INDICATION
     Dosage: 46 DF, QD
     Route: 058
     Dates: start: 20101007, end: 20140212
  5. LANTUS [Suspect]
     Active Substance: INSULIN GLARGINE
     Dosage: 11 DF, QD
     Route: 058
     Dates: start: 20110101, end: 20131104
  6. HUMALOG [Suspect]
     Active Substance: INSULIN LISPRO
     Indication: PRODUCT USED FOR UNKNOWN INDICATION
     Dosage: 18 DF, QD
     Route: 058
     Dates: start: 20111101, end: 20131104
  7. HUMALOG [Suspect]
     Active Substance: INSULIN LISPRO
     Dosage: 15 U, EACH MORNING
     Route: 058
     Dates: start: 20131104
  8. HUMALOG [Suspect]
     Active Substance: INSULIN LISPRO
     Dosage: 20 U, BID
     Route: 058
     Dates: start: 20131104
  9. LANOXIN [Concomitant]
     Active Substance: DIGOXIN
     Route: 048
  10. DEPAKENE [Concomitant]
     Active Substance: VALPROIC ACID
  11. GLUCOPHAGE [Suspect]
     Active Substance: METFORMIN HYDROCHLORIDE
     Indication: PRODUCT USED FOR UNKNOWN INDICATION
     Dosage: 3000 MG, QD
     Route: 048
     Dates: start: 20101007, end: 20140618
  12. LASIX [Concomitant]
     Active Substance: FUROSEMIDE
     Route: 048
  13. SINVACOR [Concomitant]
     Active Substance: SIMVASTATIN
     Route: 048
  14. AMIODAR [Concomitant]
     Active Substance: AMIODARONE
     Route: 048
  15. LANTUS [Suspect]
     Active Substance: INSULIN GLARGINE
     Dosage: 10 U, QD
     Route: 058
     Dates: start: 20131104

REACTIONS (5)
  - Lip injury [Recovered/Resolved]
  - Hypoglycaemia [Recovered/Resolved]
  - Glycosylated haemoglobin increased [Unknown]
  - Inappropriate schedule of drug administration [Recovered/Resolved]
  - Epilepsy [Recovered/Resolved]

NARRATIVE: CASE EVENT DATE: 20131030
